FAERS Safety Report 8524525-2 (Version None)
Quarter: 2012Q3

REPORT INFORMATION
  Report Type: 
  Country: None (occurrence: None)
  Receive Date: 20120720
  Receipt Date: 20120717
  Transmission Date: 20120928
  Serious: Yes (Hospitalization)
  Sender: FDA-Public Use
  Company Number: US-ACTELION-A-NJ2012-66792

PATIENT

DRUGS (15)
  1. TRACLEER [Suspect]
     Indication: PULMONARY ARTERIAL HYPERTENSION
     Dosage: 62.5 MG, BID
     Route: 048
  2. LIPITOR [Concomitant]
  3. ALBUTEROL SULFATE [Concomitant]
  4. VENTAVIS [Suspect]
     Indication: PULMONARY ARTERIAL HYPERTENSION
     Dosage: UNK
     Route: 055
  5. LASIX [Concomitant]
  6. NITROGLYCERIN [Concomitant]
  7. DIGOXIN [Concomitant]
  8. OXYGEN [Concomitant]
  9. POTASSIUM CHLORIDE [Concomitant]
  10. DITROPAN XL [Concomitant]
  11. PREVACID [Concomitant]
  12. COUMADIN [Concomitant]
  13. NEURONTIN [Concomitant]
  14. DILTIAZEM [Concomitant]
  15. TYLENOL PM, EXTRA STRENGTH [Concomitant]

REACTIONS (6)
  - CARDIAC PACEMAKER INSERTION [None]
  - LIGAMENT SPRAIN [None]
  - MUSCULOSKELETAL CHEST PAIN [None]
  - PRESYNCOPE [None]
  - BLOOD GLUCOSE DECREASED [None]
  - SICK SINUS SYNDROME [None]
